FAERS Safety Report 8191831-3 (Version None)
Quarter: 2012Q1

REPORT INFORMATION
  Report Type: 
  Country: None (occurrence: None)
  Receive Date: 20120307
  Receipt Date: 20120229
  Transmission Date: 20120608
  Serious: Yes (Death, Hospitalization, Other)
  Sender: FDA-Public Use
  Company Number: PHFR2012GB001072

PATIENT
  Sex: Male

DRUGS (3)
  1. MADOPAR DISPERSIBLE [Concomitant]
     Dosage: 125 MG, DAILY
     Route: 048
  2. ROTIGOTINE [Concomitant]
     Dosage: 2 MG, DAILY
     Route: 062
  3. CLOZARIL [Suspect]
     Indication: SCHIZOPHRENIA
     Dosage: 125 MG, DAILY
     Route: 048
     Dates: start: 20110503, end: 20120206

REACTIONS (8)
  - PARKINSON'S DISEASE [None]
  - HYPOPHAGIA [None]
  - PNEUMONIA [None]
  - INFECTION [None]
  - HYPOTHERMIA [None]
  - LOSS OF CONSCIOUSNESS [None]
  - FALL [None]
  - DEMENTIA [None]
